FAERS Safety Report 8792416 (Version 1)
Quarter: 2012Q4

REPORT INFORMATION
  Report Type: 
  Country: US (occurrence: US)
  Receive Date: 20120918
  Receipt Date: 20120918
  Transmission Date: 20130627
  Serious: No
  Sender: FDA-Public Use
  Company Number: US-VERTEX PHARMACEUTICAL INC.-AE-2012-010623

PATIENT
  Age: 58 Year
  Sex: Male
  Weight: 77 kg

DRUGS (6)
  1. INCIVEK [Suspect]
     Indication: HEPATITIS C
     Dosage: 750 mg, tid
     Route: 048
     Dates: start: 20120706
  2. RIBAVIRIN [Suspect]
     Indication: HEPATITIS C
     Dosage: 600 mg am, 400 mg pm
     Route: 048
     Dates: start: 20120706
  3. PEGASYS [Suspect]
     Indication: HEPATITIS C
     Dosage: 180 ?g, UNK
     Route: 058
     Dates: start: 20120705
  4. ATENOLOL [Concomitant]
     Route: 048
  5. PANTOPRAZOLE [Concomitant]
     Route: 048
  6. TESTIN [Concomitant]
     Route: 061

REACTIONS (7)
  - Inappropriate schedule of drug administration [Recovered/Resolved]
  - Restless legs syndrome [Not Recovered/Not Resolved]
  - Weight increased [Unknown]
  - Formication [Not Recovered/Not Resolved]
  - Insomnia [Not Recovered/Not Resolved]
  - Injection site erythema [Not Recovered/Not Resolved]
  - Pruritus [Not Recovered/Not Resolved]
